APPROVED DRUG PRODUCT: FENOFIBRATE (MICRONIZED)
Active Ingredient: FENOFIBRATE
Strength: 200MG
Dosage Form/Route: CAPSULE;ORAL
Application: A212232 | Product #003 | TE Code: AB
Applicant: AUROBINDO PHARMA LTD
Approved: Sep 20, 2021 | RLD: No | RS: No | Type: RX